FAERS Safety Report 11544206 (Version 1)
Quarter: 2015Q3

REPORT INFORMATION
  Report Type: Spontaneous
  Country: US (occurrence: None)
  Receive Date: 20150923
  Receipt Date: 20150923
  Transmission Date: 20151125
  Serious: Yes (Death, Hospitalization, Disabling)
  Sender: FDA-Public Use
  Company Number: None

PATIENT
  Age: 81 Year
  Sex: Female
  Weight: 49.9 kg

DRUGS (11)
  1. FENTANYL TRANSDERMAL SYSTEM [Concomitant]
     Active Substance: FENTANYL
  2. TOPROL XL [Concomitant]
     Active Substance: METOPROLOL SUCCINATE
  3. CALCIUM/MAGNESIUM [Concomitant]
  4. HYDROCODONE [Concomitant]
     Active Substance: HYDROCODONE
  5. FORTEO [Suspect]
     Active Substance: TERIPARATIDE
     Indication: FALL
     Dosage: 1 SHOT, ONCE A DAY FOR 2 YEARS, INJECTIONN INTO THE ABDOMEN
     Dates: start: 20090315, end: 20110303
  6. EYEDROPS [Concomitant]
  7. FORTEO [Suspect]
     Active Substance: TERIPARATIDE
     Indication: FRACTURE
     Dosage: 1 SHOT, ONCE A DAY FOR 2 YEARS, INJECTIONN INTO THE ABDOMEN
     Dates: start: 20090315, end: 20110303
  8. FISH OIL [Concomitant]
     Active Substance: FISH OIL
  9. DIGESTIVE ENZYMES [Concomitant]
     Active Substance: UNSPECIFIED INGREDIENT
  10. ACIDOPHILUS [Concomitant]
     Active Substance: LACTOBACILLUS ACIDOPHILUS
  11. COLACE [Concomitant]
     Active Substance: DOCUSATE SODIUM

REACTIONS (3)
  - Osteosarcoma [None]
  - Abdominal pain [None]
  - Abdominal distension [None]

NARRATIVE: CASE EVENT DATE: 20120713
